FAERS Safety Report 9513976 (Version 1)
Quarter: 2013Q3

REPORT INFORMATION
  Report Type: Spontaneous
  Country: FR (occurrence: FR)
  Receive Date: 20130910
  Receipt Date: 20130910
  Transmission Date: 20140515
  Serious: Yes (Hospitalization, Other)
  Sender: FDA-Public Use
  Company Number: FR-ELI_LILLY_AND_COMPANY-FR201308009751

PATIENT
  Age: 71 Year
  Sex: Male

DRUGS (7)
  1. CYMBALTA [Suspect]
     Indication: NEURALGIA
     Dosage: 60 MG, QD
     Route: 048
     Dates: start: 20130223, end: 20130226
  2. ATACAND [Concomitant]
     Dosage: 16 MG, UNKNOWN
     Route: 065
  3. BISOPROLOL [Concomitant]
     Dosage: UNK, UNKNOWN
     Route: 065
  4. HYTACAND [Concomitant]
     Dosage: UNK, UNKNOWN
     Route: 065
  5. LERCAN [Concomitant]
     Dosage: 20 MG, UNKNOWN
     Route: 065
  6. TAHOR [Concomitant]
     Dosage: 10 MG, UNKNOWN
     Route: 065
  7. KARDEGIC [Concomitant]
     Dosage: 75 MG, UNKNOWN
     Route: 065

REACTIONS (6)
  - Pain in extremity [Recovered/Resolved]
  - Renal function test abnormal [Unknown]
  - Disorientation [Recovered/Resolved]
  - Myoclonus [Recovered/Resolved]
  - Hallucination [Recovered/Resolved]
  - Insomnia [Recovered/Resolved]
